FAERS Safety Report 24954855 (Version 1)
Quarter: 2025Q1

REPORT INFORMATION
  Report Type: Report from Study
  Country: DE (occurrence: DE)
  Receive Date: 20250211
  Receipt Date: 20250211
  Transmission Date: 20250408
  Serious: No
  Sender: ROCHE
  Company Number: DE-ML42393-1010-006-5_0

PATIENT
  Age: 45 Year
  Sex: Female

DRUGS (26)
  1. OCREVUS [Suspect]
     Active Substance: OCRELIZUMAB
     Indication: Relapsing multiple sclerosis
     Route: 042
     Dates: start: 20221102
  2. OCREVUS [Suspect]
     Active Substance: OCRELIZUMAB
     Route: 042
     Dates: start: 20230524
  3. CITALOPRAM [Concomitant]
     Active Substance: CITALOPRAM
     Indication: Multiple sclerosis
     Dosage: DOSE: 20?DOSE FREQUENCY: QD (EVERY DAY)
     Route: 048
     Dates: start: 2012, end: 2012
  4. CANDESARTAN [Concomitant]
     Active Substance: CANDESARTAN
     Indication: Hypertension
     Dosage: DOSE: 8?DOSE FREQUENCY: QD (EVERY DAY)
     Route: 048
     Dates: start: 2018
  5. MAGNESIUM [Concomitant]
     Active Substance: MAGNESIUM
     Indication: Prophylaxis
     Dosage: DOSE: 600?DOSE FREQUENCY: QD (EVERY DAY)
     Route: 048
     Dates: start: 2018
  6. FLUTICASONE FUROATE\VILANTEROL TRIFENATATE [Concomitant]
     Active Substance: FLUTICASONE FUROATE\VILANTEROL TRIFENATATE
     Indication: Asthma
     Dosage: DOSE: 1?DOSE FREQUENCY: QD (EVERY DAY)
     Route: 065
     Dates: start: 2019
  7. CHOLECALCIFEROL [Concomitant]
     Active Substance: CHOLECALCIFEROL
     Indication: Prophylaxis
     Dosage: DOSE: 20000?DOSE FREQUENCY: QS (EVERY WEEK)
     Route: 048
     Dates: start: 2018
  8. ALBUTEROL [Concomitant]
     Active Substance: ALBUTEROL
     Indication: Asthma
     Route: 065
     Dates: start: 2019
  9. PREDNISOLUT [PREDNISOLONE HEMISUCCINATE] [Concomitant]
     Indication: Infusion related reaction
     Route: 042
     Dates: start: 20221102, end: 20221102
  10. PREDNISOLUT [PREDNISOLONE HEMISUCCINATE] [Concomitant]
     Route: 042
     Dates: start: 20221102, end: 20221102
  11. PREDNISOLUT [PREDNISOLONE HEMISUCCINATE] [Concomitant]
     Route: 042
     Dates: start: 20221116, end: 20221116
  12. PREDNISOLUT [PREDNISOLONE HEMISUCCINATE] [Concomitant]
     Route: 042
     Dates: start: 20230524, end: 20230524
  13. PREDNISOLUT [PREDNISOLONE HEMISUCCINATE] [Concomitant]
     Route: 042
     Dates: start: 20231122, end: 20231122
  14. PREDNISOLUT [PREDNISOLONE HEMISUCCINATE] [Concomitant]
     Route: 042
     Dates: start: 20240529, end: 20240529
  15. DIMETHINDENE MALEATE [Concomitant]
     Active Substance: DIMETHINDENE MALEATE
     Indication: Infusion related reaction
     Route: 042
     Dates: start: 20221102, end: 20221102
  16. DIMETHINDENE MALEATE [Concomitant]
     Active Substance: DIMETHINDENE MALEATE
     Route: 042
     Dates: start: 20221116, end: 20221116
  17. DIMETHINDENE MALEATE [Concomitant]
     Active Substance: DIMETHINDENE MALEATE
     Route: 042
     Dates: start: 20231122, end: 20231122
  18. DIMETHINDENE MALEATE [Concomitant]
     Active Substance: DIMETHINDENE MALEATE
     Route: 042
     Dates: start: 20230524, end: 20230524
  19. DIMETHINDENE MALEATE [Concomitant]
     Active Substance: DIMETHINDENE MALEATE
     Route: 042
     Dates: start: 20240529, end: 20240529
  20. RINGER-ACETAT [Concomitant]
     Indication: Infusion related reaction
     Route: 042
     Dates: start: 20221102, end: 20221102
  21. BACLOFEN [Concomitant]
     Active Substance: BACLOFEN
     Indication: Multiple sclerosis
     Dosage: DOSE: 30?DOSE FREQUENCY: QD (EVERY DAY)
     Route: 048
     Dates: start: 2023, end: 202310
  22. NABIXIMOLS [Concomitant]
     Active Substance: NABIXIMOLS
     Indication: Multiple sclerosis
     Dosage: DOSE: MAXIMUM 12?DOSE FREQUENCY: QD (EVERY DAY)
     Route: 048
     Dates: start: 20231018
  23. COTRIM [Concomitant]
     Active Substance: SULFAMETHOXAZOLE\TRIMETHOPRIM
     Indication: Urinary tract infection
     Route: 048
     Dates: start: 20231113, end: 20231116
  24. PANTOPRAZOLE SODIUM [Concomitant]
     Active Substance: PANTOPRAZOLE SODIUM
     Indication: Nausea
     Dosage: DOSE: 40?DOSE FREQUENCY: QD (EVERY DAY)
     Route: 048
     Dates: start: 202405
  25. IBU [Concomitant]
     Active Substance: IBUPROFEN
     Indication: COVID-19
     Route: 048
     Dates: start: 20250102, end: 20250109
  26. NOVALGIN (METAMIZOLE SODIUM) [Concomitant]
     Active Substance: METAMIZOLE SODIUM
     Indication: COVID-19
     Route: 048
     Dates: start: 20250102, end: 20250109

REACTIONS (1)
  - Genital herpes [Recovered/Resolved]

NARRATIVE: CASE EVENT DATE: 20240711
